FAERS Safety Report 6766891-4 (Version None)
Quarter: 2010Q2

REPORT INFORMATION
  Report Type: 
  Country: None (occurrence: None)
  Receive Date: 20100611
  Receipt Date: 20100603
  Transmission Date: 20101027
  Serious: Yes (Other)
  Sender: FDA-Public Use
  Company Number: US-ABBOTT-10P-163-0647003-00

PATIENT
  Sex: Male

DRUGS (1)
  1. HUMIRA [Suspect]
     Indication: PSORIASIS
     Dates: start: 20080101, end: 20100501

REACTIONS (3)
  - MUSCULOSKELETAL DISCOMFORT [None]
  - NODULE ON EXTREMITY [None]
  - T-CELL LYMPHOMA [None]
